FAERS Safety Report 4715707-6 (Version None)
Quarter: 2005Q3

REPORT INFORMATION
  Report Type: 
  Country: None (occurrence: None)
  Receive Date: 20050718
  Receipt Date: 20050706
  Transmission Date: 20060218
  Serious: Yes (Hospitalization)
  Sender: FDA-Public Use
  Company Number: FR-BRISTOL-MYERS SQUIBB COMPANY-13032339

PATIENT
  Sex: Male

DRUGS (4)
  1. GLUCOPHAGE [Suspect]
     Indication: DIABETES MELLITUS
     Route: 048
  2. RISPERDAL [Concomitant]
  3. DEROXAT [Concomitant]
  4. DEPAKOTE [Concomitant]

REACTIONS (2)
  - DEPRESSION [None]
  - HYPOGLYCAEMIC COMA [None]
